FAERS Safety Report 7866443-9 (Version None)
Quarter: 2011Q4

REPORT INFORMATION
  Report Type: 
  Country: None (occurrence: None)
  Receive Date: 20111028
  Receipt Date: 20110617
  Transmission Date: 20120403
  Serious: Yes (Other)
  Sender: FDA-Public Use
  Company Number: US-GLAXOSMITHKLINE-A0931879A

PATIENT
  Sex: Female

DRUGS (6)
  1. ADVAIR DISKUS 100/50 [Suspect]
     Indication: CHRONIC OBSTRUCTIVE PULMONARY DISEASE
     Dosage: 1PUFF TWICE PER DAY
     Route: 055
  2. FLOVENT [Concomitant]
     Route: 055
  3. FIORICET [Concomitant]
  4. VICODIN [Concomitant]
  5. ALBUTEROL [Concomitant]
     Route: 055
  6. COMBIVENT [Concomitant]

REACTIONS (1)
  - PNEUMONIA [None]
